FAERS Safety Report 21787331 (Version 1)
Quarter: 2022Q4

REPORT INFORMATION
  Report Type: Report from Study
  Country: HU (occurrence: HU)
  Receive Date: 20221228
  Receipt Date: 20221228
  Transmission Date: 20230112
  Serious: Yes (Hospitalization, Other)
  Sender: FDA-Public Use
  Company Number: None

PATIENT
  Age: 67 Year
  Sex: Female
  Weight: 100.7 kg

DRUGS (22)
  1. LENALIDOMIDE [Suspect]
     Active Substance: LENALIDOMIDE
     Indication: Marginal zone lymphoma refractory
     Dosage: ON DAYS 1 TO 21 OF EACH CYCLE FOR CYCLES 1 TO 12
     Route: 065
  2. LENALIDOMIDE [Suspect]
     Active Substance: LENALIDOMIDE
     Indication: Marginal zone lymphoma
     Dosage: (DAYS 1 TO 21 OF EACH 28-DAY CYCLE FOR CYCLES 1 TO 12),
     Route: 048
     Dates: start: 20220602, end: 20220617
  3. LENALIDOMIDE [Suspect]
     Active Substance: LENALIDOMIDE
     Indication: Marginal zone lymphoma refractory
     Dosage: 15 MILLIGRAM DAILY; (DAYS 1 TO 21 OF EACH 28-DAY CYCLE FOR CYCLES 1 TO 12),
     Route: 048
     Dates: start: 20220210, end: 20220407
  4. LENALIDOMIDE [Suspect]
     Active Substance: LENALIDOMIDE
     Dosage: 20 MILLIGRAM DAILY; (DAYS 1 TO 21 OF EACH 28-DAY CYCLE FOR CYCLES 1 TO 12),
     Route: 065
     Dates: start: 20211216, end: 20220209
  5. LENALIDOMIDE [Suspect]
     Active Substance: LENALIDOMIDE
     Dosage: 15 MILLIGRAM DAILY; (DAYS 1 TO 21 OF EACH 28-DAY CYCLE FOR CYCLES 1 TO 12), THERAPY END DATE : NASK
     Route: 048
     Dates: start: 20220922
  6. RITUXIMAB [Suspect]
     Active Substance: RITUXIMAB
     Indication: Marginal zone lymphoma refractory
     Dosage: ON DAYS 1, 8,15 AND 22 OF CYCLE 1 AND ON DAY 1 OF CYCLES 2 TO 5, ON 11/MAR/2022, RECEIVED THE MOST R
     Route: 065
     Dates: start: 20211216
  7. RITUXIMAB [Suspect]
     Active Substance: RITUXIMAB
     Indication: Marginal zone lymphoma refractory
     Dosage: 375 MILLIGRAM/SQ. METER (840 MG) (DAYS 1, 8, 15 AND 22 OF CYCLE 1 THEN DAY 1 OF CYCLES 2 TO 5),
     Route: 042
     Dates: start: 20211216, end: 20220311
  8. RITUXIMAB [Suspect]
     Active Substance: RITUXIMAB
     Indication: Marginal zone lymphoma
  9. TAFASITAMAB-CXIX [Suspect]
     Active Substance: TAFASITAMAB-CXIX
     Indication: Marginal zone lymphoma refractory
     Dosage: BLINDED, INFORMATION WITHHELD, ON DAYS 1, 8, 15 AND 22 OF CYCLES 1 TO 3 AND ON DAYS 1 AND 15 (EVERY
     Route: 042
     Dates: start: 20211216, end: 20220413
  10. TAFASITAMAB-CXIX [Suspect]
     Active Substance: TAFASITAMAB-CXIX
     Indication: Marginal zone lymphoma
     Dosage: BLINDED, INFORMATION WITHHELD,
     Route: 042
     Dates: start: 20220714, end: 20220728
  11. TAFASITAMAB-CXIX [Suspect]
     Active Substance: TAFASITAMAB-CXIX
     Dosage: BLINDED, INFORMATION WITHHELD,
     Route: 042
     Dates: start: 20220602, end: 20220616
  12. TAFASITAMAB-CXIX [Suspect]
     Active Substance: TAFASITAMAB-CXIX
     Dosage: BLINDED, INFORMATION WITHHELD, THERAPY END DATE : NASK
     Route: 042
     Dates: start: 20220922
  13. COMIRNATY [Concomitant]
     Active Substance: TOZINAMERAN
     Indication: Product used for unknown indication
     Dosage: UNK,
     Route: 065
     Dates: start: 20210303, end: 20211118
  14. FUROSEMIDE [Concomitant]
     Active Substance: FUROSEMIDE
     Indication: Product used for unknown indication
     Dosage: UNK
     Route: 065
     Dates: start: 2015
  15. SOLU-MEDROL [Concomitant]
     Active Substance: METHYLPREDNISOLONE SODIUM SUCCINATE
     Indication: Product used for unknown indication
     Dosage: UNK
     Route: 065
     Dates: start: 20211216
  16. ALPRAZOLAM [Concomitant]
     Active Substance: ALPRAZOLAM
     Indication: Product used for unknown indication
     Dosage: UNK
     Route: 065
     Dates: start: 2019
  17. ACYCLOVIR [Concomitant]
     Active Substance: ACYCLOVIR
     Indication: Product used for unknown indication
     Dosage: UNK
     Route: 065
     Dates: start: 20211216
  18. ACETAMINOPHEN [Concomitant]
     Active Substance: ACETAMINOPHEN
     Indication: Product used for unknown indication
     Dosage: UNK
     Route: 065
     Dates: start: 20211216
  19. SULFAMETHOXAZOLE\TRIMETHOPRIM [Concomitant]
     Active Substance: SULFAMETHOXAZOLE\TRIMETHOPRIM
     Indication: Product used for unknown indication
     Dosage: UNK,
     Route: 065
     Dates: start: 20220520, end: 20220529
  20. METFORMIN [Concomitant]
     Active Substance: METFORMIN HYDROCHLORIDE
     Indication: Product used for unknown indication
     Dosage: UNK
     Route: 065
     Dates: start: 20220602
  21. ALLOPURINOL [Concomitant]
     Active Substance: ALLOPURINOL
     Indication: Product used for unknown indication
     Dosage: UNK
     Route: 065
     Dates: start: 201910
  22. CETIRIZINE [Concomitant]
     Active Substance: CETIRIZINE HYDROCHLORIDE
     Indication: Product used for unknown indication
     Dosage: UNK
     Route: 065
     Dates: start: 20211216

REACTIONS (7)
  - Hypogammaglobulinaemia [Recovered/Resolved]
  - COVID-19 pneumonia [Recovered/Resolved with Sequelae]
  - Anaemia [Unknown]
  - C-reactive protein increased [Not Recovered/Not Resolved]
  - Escherichia infection [Recovering/Resolving]
  - Off label use [Unknown]
  - Candida infection [Recovering/Resolving]

NARRATIVE: CASE EVENT DATE: 20220623
